FAERS Safety Report 5804746-X (Version None)
Quarter: 2008Q3

REPORT INFORMATION
  Report Type: 
  Country: None (occurrence: None)
  Receive Date: 20080709
  Receipt Date: 20080702
  Transmission Date: 20090109
  Serious: Yes (Death)
  Sender: FDA-Public Use
  Company Number: BE-ABBOTT-08P-013-0460861-00

PATIENT
  Sex: Male
  Weight: 31.78 kg

DRUGS (1)
  1. LEUPROLIDE ACETATE FOR DEPOT SUSPENSION [Suspect]
     Indication: PROSTATE CANCER
     Dates: start: 20060622

REACTIONS (2)
  - CARDIAC FAILURE [None]
  - LUNG INFECTION [None]
